FAERS Safety Report 25343870 (Version 2)
Quarter: 2025Q2

REPORT INFORMATION
  Report Type: Spontaneous
  Country: US (occurrence: US)
  Receive Date: 20250521
  Receipt Date: 20250613
  Transmission Date: 20250716
  Serious: No
  Sender: SANOFI AVENTIS
  Company Number: US-SA-2025SA144400

PATIENT
  Age: 50 Year
  Sex: Male
  Weight: 119.73 kg

DRUGS (1)
  1. DUPIXENT [Suspect]
     Active Substance: DUPILUMAB
     Indication: Eosinophilic oesophagitis
     Dosage: 300 MG, QW
     Route: 058

REACTIONS (4)
  - Dyspnoea [Unknown]
  - Rebound atopic dermatitis [Recovering/Resolving]
  - Dysphagia [Unknown]
  - Drug ineffective [Unknown]
